FAERS Safety Report 24401191 (Version 2)
Quarter: 2024Q4

REPORT INFORMATION
  Report Type: Spontaneous
  Country: US (occurrence: US)
  Receive Date: 20241007
  Receipt Date: 20241028
  Transmission Date: 20250114
  Serious: No
  Sender: JOHNSON AND JOHNSON
  Company Number: US-JNJFOC-20241011871

PATIENT
  Age: 44 Year
  Sex: Female

DRUGS (9)
  1. SPRAVATO [Suspect]
     Active Substance: ESKETAMINE
     Indication: Migraine
     Dates: start: 20240513, end: 20240923
  2. SPRAVATO [Suspect]
     Active Substance: ESKETAMINE
     Indication: Hypoaesthesia oral
  3. SPRAVATO [Suspect]
     Active Substance: ESKETAMINE
     Indication: Paraesthesia oral
  4. SPRAVATO [Suspect]
     Active Substance: ESKETAMINE
     Indication: Swelling
  5. WELLBUTRIN XL [Concomitant]
     Active Substance: BUPROPION HYDROCHLORIDE
     Indication: Depression
     Route: 048
     Dates: start: 2022
  6. BIOPAR [Concomitant]
     Indication: Anxiety
     Route: 048
     Dates: start: 2022
  7. VALIUM [Concomitant]
     Active Substance: DIAZEPAM
     Indication: Insomnia
     Dates: start: 2022
  8. NALTREXONE [Concomitant]
     Active Substance: NALTREXONE
     Indication: Weight decreased
     Route: 048
     Dates: start: 2022
  9. LAMICTAL [Concomitant]
     Active Substance: LAMOTRIGINE
     Indication: Depressed mood
     Route: 048
     Dates: start: 2022

REACTIONS (4)
  - Migraine [Recovered/Resolved]
  - Hypoaesthesia oral [Recovered/Resolved]
  - Paraesthesia oral [Recovered/Resolved]
  - Swelling [Recovered/Resolved]

NARRATIVE: CASE EVENT DATE: 20240923
